FAERS Safety Report 7905763-6 (Version None)
Quarter: 2011Q4

REPORT INFORMATION
  Report Type: 
  Country: None (occurrence: None)
  Receive Date: 20111110
  Receipt Date: 20111031
  Transmission Date: 20120403
  Serious: Yes (Other)
  Sender: FDA-Public Use
  Company Number: PT-SP-2011-10708

PATIENT
  Age: 65 Year
  Sex: Male

DRUGS (1)
  1. TICE BCG [Suspect]
     Indication: BLADDER TRANSITIONAL CELL CARCINOMA
     Dosage: NOT REPORTED
     Route: 043

REACTIONS (7)
  - MYALGIA [None]
  - ASTHENIA [None]
  - MEDICAL DEVICE COMPLICATION [None]
  - INFECTION [None]
  - ACCIDENTAL EXPOSURE [None]
  - PYREXIA [None]
  - NODULE [None]
